FAERS Safety Report 8802746 (Version 1)
Quarter: 2012Q4

REPORT INFORMATION
  Report Type: 
  Country: JP (occurrence: JP)
  Receive Date: 20120921
  Receipt Date: 20120921
  Transmission Date: 20130627
  Serious: Yes (Other)
  Sender: FDA-Public Use
  Company Number: JP-009507513-1205USA05543

PATIENT
  Age: 50 Year
  Sex: Male

DRUGS (3)
  1. JANUVIA TABLETS 50MG [Suspect]
     Dosage: 50 mg, qd
     Route: 048
     Dates: start: 20120218, end: 20120601
  2. ZYLORIC [Concomitant]
     Dosage: Dosage is uncertain during a day
     Route: 048
     Dates: start: 20120218
  3. TENORMIN [Concomitant]
     Dosage: Dosage is uncertain during a day
     Route: 048
     Dates: start: 20120218

REACTIONS (2)
  - Rhabdomyolysis [Unknown]
  - Myalgia [Unknown]
